FAERS Safety Report 6714032-1 (Version None)
Quarter: 2010Q2

REPORT INFORMATION
  Report Type: 
  Country: None (occurrence: None)
  Receive Date: 20100506
  Receipt Date: 20100426
  Transmission Date: 20101027
  Serious: Yes (Life-Threatening, Hospitalization, Other)
  Sender: FDA-Public Use
  Company Number: PHHY2010US25611

PATIENT
  Sex: Female
  Weight: 110.66 kg

DRUGS (5)
  1. DIOVAN HCT [Suspect]
     Indication: HYPERTENSION
     Dosage: 320/25 MG
     Route: 048
     Dates: start: 20080101, end: 20100417
  2. VITAMIN D [Concomitant]
     Indication: VITAMIN D DEFICIENCY
     Dosage: 50000 IU PER WEEK
  3. DIAZEPAM [Concomitant]
     Dosage: UNK
  4. PROZAC [Concomitant]
     Indication: DEPRESSION
     Dosage: 20 MG, QD
  5. FLUOXETINE [Concomitant]
     Dosage: 20 MG, BID

REACTIONS (16)
  - ANGIOEDEMA [None]
  - DYSARTHRIA [None]
  - DYSPHAGIA [None]
  - DYSPNOEA [None]
  - ENDOTRACHEAL INTUBATION [None]
  - FACE OEDEMA [None]
  - HYPERSENSITIVITY [None]
  - LIP OEDEMA [None]
  - LOSS OF CONSCIOUSNESS [None]
  - OBSTRUCTIVE AIRWAYS DISORDER [None]
  - OEDEMA MOUTH [None]
  - PULMONARY OEDEMA [None]
  - RESPIRATORY DISTRESS [None]
  - SWOLLEN TONGUE [None]
  - TONGUE OEDEMA [None]
  - TRACHEOSTOMY [None]
